FAERS Safety Report 7293473-0 (Version None)
Quarter: 2011Q1

REPORT INFORMATION
  Report Type: 
  Country: None (occurrence: None)
  Receive Date: 20110215
  Receipt Date: 20110207
  Transmission Date: 20110831
  Serious: Yes (Other)
  Sender: FDA-Public Use
  Company Number: BR-BRISTOL-MYERS SQUIBB COMPANY-15542137

PATIENT
  Age: 42 Year
  Sex: Female

DRUGS (3)
  1. RITONAVIR [Suspect]
     Indication: HIV INFECTION
  2. BIOVIR [Suspect]
     Indication: HIV INFECTION
     Dates: start: 20101206
  3. REYATAZ [Suspect]
     Indication: HIV INFECTION
     Dosage: INTERRUPTED ON 31JAN11
     Route: 048
     Dates: start: 20101227

REACTIONS (1)
  - IDIOPATHIC THROMBOCYTOPENIC PURPURA [None]
